FAERS Safety Report 9037165 (Version 1)
Quarter: 2013Q1

REPORT INFORMATION
  Report Type: Spontaneous
  Country: US (occurrence: None)
  Receive Date: 20130109
  Receipt Date: 20130109
  Transmission Date: 20140127
  Serious: Yes (Hospitalization)
  Sender: FDA-Public Use
  Company Number: AEUSA201200478

PATIENT
  Age: 58 Year
  Sex: Female
  Weight: 74.84 kg

DRUGS (11)
  1. GAMMAKED [Suspect]
     Route: 042
     Dates: start: 20121010, end: 20121010
  2. GABAPENTIN [Concomitant]
  3. BUPRENORPHINE [Concomitant]
  4. FOLIC ACID [Concomitant]
  5. OXYCODONE / ACETAMINOPHEN [Concomitant]
  6. LOPRESSOR [Concomitant]
  7. PREDNISONE [Concomitant]
  8. LEXAPRO [Concomitant]
  9. TORSEMIDE [Concomitant]
  10. BIOTIN [Concomitant]
  11. CLONAZEPAM [Concomitant]

REACTIONS (4)
  - Swelling [None]
  - Swelling face [None]
  - Pruritus [None]
  - Local swelling [None]
